FAERS Safety Report 17363078 (Version 4)
Quarter: 2020Q4

REPORT INFORMATION
  Report Type: Spontaneous
  Country: US (occurrence: US)
  Receive Date: 20200203
  Receipt Date: 20201230
  Transmission Date: 20210113
  Serious: Yes (Other)
  Sender: FDA-Public Use
  Company Number: US-GILEAD-2020-0449365

PATIENT
  Age: 49 Year
  Sex: Male
  Weight: 77.1 kg

DRUGS (10)
  1. NAPROXEN. [Concomitant]
     Active Substance: NAPROXEN
  2. LOVASTATIN. [Concomitant]
     Active Substance: LOVASTATIN
  3. LISINOPRIL. [Concomitant]
     Active Substance: LISINOPRIL
  4. IBUPROFEN. [Concomitant]
     Active Substance: IBUPROFEN
  5. AMOXICILLIN. [Concomitant]
     Active Substance: AMOXICILLIN
  6. ODEFSEY [Concomitant]
     Active Substance: EMTRICITABINE\RILPIVIRINE HYDROCHLORIDE\TENOFOVIR ALAFENAMIDE FUMARATE
  7. ACETAMINOPHEN. [Concomitant]
     Active Substance: ACETAMINOPHEN
  8. ATRIPLA [Suspect]
     Active Substance: EFAVIRENZ\EMTRICITABINE\TENOFOVIR DISOPROXIL FUMARATE
     Indication: HIV INFECTION
     Dosage: UNK
     Route: 048
     Dates: start: 20110322, end: 20171025
  9. INSULIN [Concomitant]
     Active Substance: INSULIN NOS
  10. DICLOFENAC [Concomitant]
     Active Substance: DICLOFENAC

REACTIONS (12)
  - Chronic kidney disease [Not Recovered/Not Resolved]
  - Emotional distress [Unknown]
  - Gait disturbance [Not Recovered/Not Resolved]
  - Anhedonia [Unknown]
  - Exercise tolerance decreased [Not Recovered/Not Resolved]
  - Economic problem [Unknown]
  - Somnolence [Unknown]
  - Bone density decreased [Unknown]
  - Tooth loss [Unknown]
  - Anxiety [Unknown]
  - Pain [Unknown]
  - Depression [Not Recovered/Not Resolved]

NARRATIVE: CASE EVENT DATE: 2012
